FAERS Safety Report 6056651-4 (Version None)
Quarter: 2009Q1

REPORT INFORMATION
  Report Type: 
  Country: None (occurrence: None)
  Receive Date: 20090129
  Receipt Date: 20090121
  Transmission Date: 20090719
  Serious: Yes (Other)
  Sender: FDA-Public Use
  Company Number: US-PFIZER INC-2002100326US

PATIENT
  Sex: Female
  Weight: 83.91 kg

DRUGS (5)
  1. XALATAN [Suspect]
     Indication: GLAUCOMA
     Route: 047
  2. TIMOLOL MALEATE [Concomitant]
     Route: 047
  3. LANOXIN [Concomitant]
     Route: 065
  4. NORVASC [Concomitant]
     Route: 065
  5. TOPROL-XL [Concomitant]
     Route: 065

REACTIONS (12)
  - BLINDNESS [None]
  - BODY HEIGHT DECREASED [None]
  - CARDIAC DISORDER [None]
  - DIABETES MELLITUS [None]
  - DRUG INEFFECTIVE [None]
  - EYE IRRITATION [None]
  - HEART RATE INCREASED [None]
  - HYPERTENSION [None]
  - MALAISE [None]
  - PHOTOPHOBIA [None]
  - TEMPORAL ARTERITIS [None]
  - WEIGHT DECREASED [None]
